FAERS Safety Report 5770503-6 (Version None)
Quarter: 2008Q2

REPORT INFORMATION
  Report Type: 
  Country: None (occurrence: None)
  Receive Date: 20080613
  Receipt Date: 20080506
  Transmission Date: 20081010
  Serious: No
  Sender: FDA-Public Use
  Company Number: US-ABBOTT-08P-163-0450554-00

PATIENT
  Sex: Female
  Weight: 63.56 kg

DRUGS (8)
  1. HUMIRA [Suspect]
     Indication: CROHN'S DISEASE
     Route: 058
     Dates: start: 20080301, end: 20080301
  2. HUMIRA [Suspect]
     Dosage: TWO WEEKS LATER
     Route: 058
  3. HUMIRA [Suspect]
     Route: 058
  4. BUDESONIDE [Concomitant]
     Indication: CROHN'S DISEASE
     Route: 048
     Dates: start: 20080301
  5. MULTI-VITAMIN [Concomitant]
     Indication: VITAMIN SUPPLEMENTATION
     Route: 048
  6. CALCIUM [Concomitant]
     Indication: MINERAL SUPPLEMENTATION
     Dosage: ONCE OR TWICE DAILY
     Route: 048
  7. NORGESTIMATE AND ETHINYL ESTRADIOL [Concomitant]
     Indication: HORMONE REPLACEMENT THERAPY
     Dosage: 0.25MG/0.035MG ONCE DAILY
     Dates: start: 20010101
  8. CLONAZEPAM [Concomitant]
     Indication: ANXIETY
     Route: 048
     Dates: start: 20060101

REACTIONS (1)
  - ACCIDENTAL EXPOSURE [None]
